FAERS Safety Report 11975098 (Version 1)
Quarter: 2016Q1

REPORT INFORMATION
  Report Type: Report from Study
  Country: US (occurrence: US)
  Receive Date: 20160128
  Receipt Date: 20160128
  Transmission Date: 20160526
  Serious: No
  Sender: FDA-Public Use
  Company Number: US-ABBVIE-15K-163-1402726-00

PATIENT
  Age: 64 Year
  Sex: Male

DRUGS (1)
  1. HUMIRA [Suspect]
     Active Substance: ADALIMUMAB
     Indication: COLITIS
     Route: 065

REACTIONS (3)
  - Dry skin [Unknown]
  - Skin texture abnormal [Unknown]
  - Ear pruritus [Unknown]

NARRATIVE: CASE EVENT DATE: 2015
